FAERS Safety Report 6192654-7 (Version None)
Quarter: 2009Q2

REPORT INFORMATION
  Report Type: 
  Country: None (occurrence: None)
  Receive Date: 20090514
  Receipt Date: 20090514
  Transmission Date: 20091009
  Serious: No
  Sender: FDA-Public Use
  Company Number: None

PATIENT
  Sex: Female
  Weight: 56.8 kg

DRUGS (2)
  1. CARBOPLATIN [Suspect]
     Dosage: 660 MG
  2. TAXOL [Suspect]
     Dosage: 280 MG

REACTIONS (1)
  - NEUTROPHIL COUNT DECREASED [None]
